FAERS Safety Report 4872658-4 (Version None)
Quarter: 2006Q1

REPORT INFORMATION
  Report Type: 
  Country: None (occurrence: None)
  Receive Date: 20060105
  Receipt Date: 20051228
  Transmission Date: 20060701
  Serious: Yes (Other)
  Sender: FDA-Public Use
  Company Number: DE-JNJFOC-20051205716

PATIENT
  Age: 53 Year
  Sex: Female

DRUGS (8)
  1. INFLIXIMAB [Suspect]
     Indication: RHEUMATOID ARTHRITIS
     Route: 042
  2. ALLOPURINOL [Suspect]
     Route: 048
  3. PREDNISOLONE [Concomitant]
     Route: 048
     Dates: start: 19990201
  4. PREDNISOLONE [Concomitant]
     Indication: RHEUMATOID ARTHRITIS
     Route: 048
     Dates: start: 19990201
  5. BELOC ZOC [Concomitant]
     Route: 048
  6. BELOC ZOC [Concomitant]
     Route: 048
  7. APROVEL [Concomitant]
     Route: 048
  8. VALERON RETARD [Concomitant]
     Indication: PAIN
     Route: 048

REACTIONS (2)
  - BORRELIA INFECTION [None]
  - SCOTOMA [None]
